FAERS Safety Report 9193423 (Version 1)
Quarter: 2013Q1

REPORT INFORMATION
  Report Type: Report from Study
  Country: DE (occurrence: DE)
  Receive Date: 20130327
  Receipt Date: 20130327
  Transmission Date: 20140127
  Serious: Yes (Hospitalization)
  Sender: FDA-Public Use
  Company Number: DE-ABBOTT-12P-062-1025333-00

PATIENT
  Sex: Female

DRUGS (2)
  1. HUMIRA [Suspect]
     Indication: CROHN^S DISEASE
     Route: 058
     Dates: start: 20120903, end: 20130110
  2. AZATHIOPRINE [Concomitant]
     Indication: PRODUCT USED FOR UNKNOWN INDICATION

REACTIONS (5)
  - Rectal cancer [Not Recovered/Not Resolved]
  - Ovarian cancer [Unknown]
  - Abscess [Not Recovered/Not Resolved]
  - Anal inflammation [Not Recovered/Not Resolved]
  - Uterine cancer [Unknown]
